FAERS Safety Report 24030650 (Version 1)
Quarter: 2024Q2

REPORT INFORMATION
  Report Type: Spontaneous
  Country: BG (occurrence: BG)
  Receive Date: 20240628
  Receipt Date: 20240628
  Transmission Date: 20240716
  Serious: Yes (Life-Threatening, Hospitalization)
  Sender: FDA-Public Use
  Company Number: BG-MYLANLABS-2024M1060820

PATIENT
  Sex: Female

DRUGS (2)
  1. SERTRALINE [Suspect]
     Active Substance: SERTRALINE HYDROCHLORIDE
     Indication: Depression
     Dosage: 25 MILLIGRAM, QD
     Route: 064
  2. LAMOTRIGINE [Concomitant]
     Active Substance: LAMOTRIGINE
     Indication: Depression
     Dosage: 200 MILLIGRAM, QD
     Route: 064

REACTIONS (4)
  - Ductus arteriosus stenosis foetal [Recovered/Resolved]
  - Cardiomegaly [Recovered/Resolved]
  - Respiratory failure [Recovered/Resolved]
  - Foetal exposure during pregnancy [Recovered/Resolved]
